FAERS Safety Report 8270137-8 (Version None)
Quarter: 2012Q2

REPORT INFORMATION
  Report Type: 
  Country: None (occurrence: None)
  Receive Date: 20120410
  Receipt Date: 20120409
  Transmission Date: 20120825
  Serious: Yes (Death, Life-Threatening, Hospitalization)
  Sender: FDA-Public Use
  Company Number: JP-JNJFOC-20110106264

PATIENT
  Sex: Female
  Weight: 57 kg

DRUGS (42)
  1. DOXIL [Suspect]
     Route: 042
     Dates: start: 20101124, end: 20101124
  2. DOXIL [Suspect]
     Route: 042
     Dates: start: 20101124, end: 20101124
  3. METHYCOBAL [Concomitant]
     Indication: NEUROPATHY PERIPHERAL
     Route: 048
     Dates: start: 20080101, end: 20110117
  4. FUTHAN [Concomitant]
     Indication: DISSEMINATED INTRAVASCULAR COAGULATION
     Route: 041
     Dates: start: 20110123, end: 20110125
  5. RECOMODULIN [Concomitant]
     Indication: DISSEMINATED INTRAVASCULAR COAGULATION
     Route: 041
     Dates: start: 20110125, end: 20110130
  6. DOXIL [Suspect]
     Indication: MALIGNANT PERITONEAL NEOPLASM
     Route: 042
     Dates: start: 20101222, end: 20101222
  7. DOXIL [Suspect]
     Indication: OVARIAN CANCER RECURRENT
     Route: 042
     Dates: start: 20101222, end: 20101222
  8. CISPLATIN W/DOCETAXEL [Suspect]
     Indication: MALIGNANT PERITONEAL NEOPLASM
     Route: 065
  9. CYCLOPHOSPHAMIDE [Suspect]
     Indication: MALIGNANT PERITONEAL NEOPLASM
     Route: 065
  10. NORVASC [Concomitant]
     Indication: HYPERTENSION
     Route: 048
     Dates: end: 20110117
  11. ELASPOL [Concomitant]
     Indication: INTERSTITIAL LUNG DISEASE
     Route: 041
     Dates: start: 20110117, end: 20110123
  12. PENTAMIDINE ISETHIONATE [Concomitant]
     Indication: PNEUMOCYSTIS JIROVECI PNEUMONIA
     Route: 041
     Dates: start: 20110125
  13. GOSHA-JINKI-GAN [Concomitant]
     Indication: NEUROPATHY PERIPHERAL
     Route: 048
     Dates: start: 20080101, end: 20110116
  14. BACTRIM [Concomitant]
     Indication: PLATELET COUNT DECREASED
     Route: 041
     Dates: start: 20110117, end: 20110125
  15. SOLU-MEDROL [Concomitant]
     Route: 041
     Dates: start: 20110124, end: 20110126
  16. ZITHROMAX [Concomitant]
     Indication: PROPHYLAXIS
     Route: 048
     Dates: start: 20110117, end: 20110117
  17. PREDOPA [Concomitant]
     Indication: BLOOD PRESSURE DECREASED
     Route: 041
     Dates: start: 20110117, end: 20110221
  18. DALTEPARIN SODIUM [Concomitant]
     Indication: DISSEMINATED INTRAVASCULAR COAGULATION
     Route: 041
     Dates: start: 20110123, end: 20110125
  19. REMINARON [Concomitant]
     Indication: DISSEMINATED INTRAVASCULAR COAGULATION
     Route: 041
     Dates: start: 20110131, end: 20110206
  20. ZOSYN [Suspect]
     Indication: INTERSTITIAL LUNG DISEASE
     Route: 041
     Dates: start: 20110114, end: 20110206
  21. BACTRIM [Concomitant]
     Indication: INTERSTITIAL LUNG DISEASE
     Route: 041
     Dates: start: 20110117, end: 20110125
  22. SOLU-MEDROL [Concomitant]
     Indication: INTERSTITIAL LUNG DISEASE
     Route: 041
     Dates: start: 20110117, end: 20110119
  23. SOLU-MEDROL [Concomitant]
     Route: 041
     Dates: start: 20110131, end: 20110202
  24. MUCOSTA [Concomitant]
     Indication: PROPHYLAXIS
     Route: 048
     Dates: start: 20101124, end: 20110117
  25. DAI-KENCHU-TO [Concomitant]
     Indication: CONSTIPATION
     Route: 048
     Dates: start: 20080101, end: 20110116
  26. FUTHAN [Concomitant]
     Route: 041
     Dates: start: 20110123, end: 20110125
  27. DALTEPARIN SODIUM [Concomitant]
     Route: 041
     Dates: start: 20110123, end: 20110125
  28. PRODIF [Concomitant]
     Indication: FUNGAL INFECTION
     Route: 042
     Dates: start: 20110128, end: 20110131
  29. HUMULIN R [Concomitant]
     Indication: DIABETES MELLITUS
     Route: 058
     Dates: start: 20110117, end: 20110221
  30. MAGNESIUM OXIDE [Concomitant]
     Indication: CONSTIPATION
     Route: 048
     Dates: start: 20080101, end: 20110117
  31. MIDAZOLAM HCL [Concomitant]
     Indication: SEDATION
     Route: 042
     Dates: start: 20110112, end: 20110222
  32. MIDAZOLAM HCL [Concomitant]
     Indication: RESTLESSNESS
     Route: 042
     Dates: start: 20110112, end: 20110222
  33. VANCOMYCIN HYDROCHLORIDE [Concomitant]
     Route: 041
     Dates: start: 20110123, end: 20110202
  34. PENTAMIDINE ISETHIONATE [Concomitant]
     Indication: INTERSTITIAL LUNG DISEASE
     Route: 041
     Dates: start: 20110125
  35. MINOCYCLINE HYDROCHLORIDE [Suspect]
     Indication: INFECTION
     Route: 041
     Dates: start: 20110129, end: 20110131
  36. MINOCYCLINE HYDROCHLORIDE [Suspect]
     Indication: PYREXIA
     Route: 041
     Dates: start: 20110129, end: 20110131
  37. TAXOTERE [Suspect]
     Indication: MALIGNANT PERITONEAL NEOPLASM
     Route: 065
  38. PREDOPA [Concomitant]
     Route: 041
     Dates: start: 20110117, end: 20110221
  39. VANCOMYCIN HYDROCHLORIDE [Concomitant]
     Indication: INFECTION
     Route: 041
     Dates: start: 20110123, end: 20110202
  40. DALTEPARIN SODIUM [Concomitant]
     Route: 041
     Dates: start: 20110131, end: 20110211
  41. PREDNISOLONE [Concomitant]
     Indication: INTERSTITIAL LUNG DISEASE
     Route: 041
     Dates: start: 20110203, end: 20110221
  42. CONCENTRATED HUMAN BLOOD PLATELETS [Concomitant]
     Indication: PLATELET COUNT DECREASED
     Route: 041
     Dates: start: 20110123

REACTIONS (15)
  - DISSEMINATED INTRAVASCULAR COAGULATION [None]
  - DEHYDRATION [None]
  - CARDIAC FAILURE [None]
  - ANURIA [None]
  - DEEP VEIN THROMBOSIS [None]
  - PYREXIA [None]
  - INTERSTITIAL LUNG DISEASE [None]
  - BLOOD PRESSURE DECREASED [None]
  - HEPATIC FUNCTION ABNORMAL [None]
  - DECREASED APPETITE [None]
  - RESTLESSNESS [None]
  - PANCYTOPENIA [None]
  - MALAISE [None]
  - BONE MARROW FAILURE [None]
  - FATIGUE [None]
